FAERS Safety Report 7111793-7 (Version None)
Quarter: 2010Q4

REPORT INFORMATION
  Report Type: 
  Country: None (occurrence: None)
  Receive Date: 20101119
  Receipt Date: 20100113
  Transmission Date: 20110411
  Serious: Yes (Other)
  Sender: FDA-Public Use
  Company Number: US-ASTRAZENECA-2009UW11001

PATIENT
  Age: 11499 Day
  Sex: Male

DRUGS (14)
  1. SEROQUEL [Suspect]
     Dosage: 25 MG TO 75 MG
     Route: 048
     Dates: start: 20011210
  2. SEROQUEL [Suspect]
     Route: 048
     Dates: start: 20020417
  3. ACTOS [Concomitant]
     Dates: start: 20070601
  4. TRICOR [Concomitant]
     Dates: start: 20070601
  5. PAXIL [Concomitant]
     Dates: start: 20070601
  6. ULTRAM [Concomitant]
     Dates: start: 20070601
  7. METFORMIN HCL [Concomitant]
     Dates: start: 20070601
  8. LANTUS [Concomitant]
     Dates: start: 20070601
  9. HUMULIN N [Concomitant]
     Dates: start: 20070601
  10. HUMULIN R [Concomitant]
     Dates: start: 20070601
  11. DIAZEPAM [Concomitant]
     Dates: start: 20030805
  12. HYZAAR [Concomitant]
     Dates: start: 20030805
  13. DEPAKOTE [Concomitant]
     Dates: start: 20030805
  14. EFFEXOR XR [Concomitant]
     Dosage: 75 MG TID, ONE CAPSULE PO QAM AND TWO CAPSULE HS
     Route: 048
     Dates: start: 20020304

REACTIONS (4)
  - DIABETIC KETOACIDOSIS [None]
  - HYPERGLYCAEMIA [None]
  - NEUROPATHY PERIPHERAL [None]
  - TYPE 2 DIABETES MELLITUS [None]
